FAERS Safety Report 14763118 (Version 3)
Quarter: 2018Q2

REPORT INFORMATION
  Report Type: Spontaneous
  Country: JP (occurrence: JP)
  Receive Date: 20180416
  Receipt Date: 20180615
  Transmission Date: 20180711
  Serious: Yes (Hospitalization)
  Sender: FDA-Public Use
  Company Number: JP-JT-EVA201801013KERYXP-001

PATIENT
  Age: 68 Year
  Sex: Male
  Weight: 63 kg

DRUGS (15)
  1. ARTIST [Concomitant]
     Active Substance: CARVEDILOL
     Indication: HYPERTENSION
     Dosage: 10 MG, QD
     Route: 048
  2. HEPARIN [Concomitant]
     Active Substance: HEPARIN SODIUM
     Indication: THROMBOSIS PROPHYLAXIS
     Dosage: 1400 IU, QD
     Route: 010
  3. RIONA [Suspect]
     Active Substance: FERRIC CITRATE ANHYDROUS
     Indication: HYPERPHOSPHATAEMIA
     Dosage: 250 MG, TID
     Route: 048
  4. FOLIAMIN [Concomitant]
     Active Substance: FOLIC ACID
     Indication: FOLATE DEFICIENCY
     Dosage: 2.5 MG, QD
     Route: 048
  5. INVESTIGATIONAL DRUG [Concomitant]
     Active Substance: INVESTIGATIONAL PRODUCT
     Indication: NEPHROGENIC ANAEMIA
     Dosage: 4 MG, QD
     Route: 048
     Dates: start: 20180122, end: 20180325
  6. NORVASC [Concomitant]
     Active Substance: AMLODIPINE BESYLATE
     Indication: HYPERTENSION
     Dosage: 5 MG, QD
     Route: 048
  7. REGPARA [Concomitant]
     Active Substance: CINACALCET HYDROCHLORIDE
     Indication: HYPERPARATHYROIDISM SECONDARY
     Dosage: 25 MG, QD
     Route: 048
  8. HEPARIN [Concomitant]
     Active Substance: HEPARIN SODIUM
     Dosage: 800 IU, QHS
     Route: 010
  9. L CARTIN FF [Concomitant]
     Active Substance: LEVOCARNITINE
     Indication: CARNITINE DEFICIENCY
     Dosage: 1000 MG, QD
     Route: 042
  10. INVESTIGATIONAL DRUG [Concomitant]
     Active Substance: INVESTIGATIONAL PRODUCT
     Dosage: 2 MG, QD
     Route: 048
     Dates: start: 20180521
  11. GASTER [Concomitant]
     Active Substance: FAMOTIDINE
     Indication: GASTRIC ULCER
     Dosage: 10 MG, QD
     Route: 048
  12. FOSRENOL [Concomitant]
     Active Substance: LANTHANUM CARBONATE
     Indication: HYPERPHOSPHATAEMIA
     Dosage: 250 MG, TID
     Route: 048
  13. WHITE PETROLATUM [Concomitant]
     Active Substance: PETROLATUM
     Indication: ASTEATOSIS
     Dosage: UNK
     Route: 003
  14. HYALEIN [Concomitant]
     Active Substance: HYALURONATE SODIUM
     Indication: CONJUNCTIVITIS BACTERIAL
     Dosage: UNK UNK, QD
     Route: 061
  15. CRAVIT [Concomitant]
     Active Substance: LEVOFLOXACIN
     Indication: CONJUNCTIVITIS BACTERIAL
     Dosage: UNK UNK, QD
     Route: 061

REACTIONS (2)
  - Vitreous opacities [Recovered/Resolved]
  - Device dislocation [Recovered/Resolved]

NARRATIVE: CASE EVENT DATE: 20180306
